FAERS Safety Report 17911362 (Version 1)
Quarter: 2020Q2

REPORT INFORMATION
  Report Type: Spontaneous
  Country: US (occurrence: US)
  Receive Date: 20200617
  Receipt Date: 20200617
  Transmission Date: 20200714
  Serious: Yes (Other)
  Sender: FDA-Public Use
  Company Number: None

PATIENT
  Age: 38 Year
  Sex: Female

DRUGS (1)
  1. BUPRENORPHINE-NALOXONE, 8-2 MG [Suspect]
     Active Substance: BUPRENORPHINE HYDROCHLORIDE\NALOXONE HYDROCHLORIDE
     Indication: DRUG DEPENDENCE
     Dosage: ?          OTHER DOSE:3 DAILY;?
     Route: 048

REACTIONS (3)
  - Nausea [None]
  - Headache [None]
  - Vomiting [None]

NARRATIVE: CASE EVENT DATE: 20200605
